FAERS Safety Report 20869796 (Version 4)
Quarter: 2022Q3

REPORT INFORMATION
  Report Type: Spontaneous
  Country: PL (occurrence: PL)
  Receive Date: 20220525
  Receipt Date: 20220715
  Transmission Date: 20221027
  Serious: Yes (Other)
  Sender: FDA-Public Use
  Company Number: PL-SA-2022SA182847

PATIENT
  Age: 47 Year
  Sex: Male
  Weight: 78 kg

DRUGS (2)
  1. MYOZYME [Suspect]
     Active Substance: ALGLUCOSIDASE ALFA
     Dosage: 20 MG/KG
     Route: 042
     Dates: start: 20210923
  2. NIMESULIDE [Concomitant]
     Active Substance: NIMESULIDE
     Indication: Arthralgia
     Dosage: UNK

REACTIONS (6)
  - Dyspnoea at rest [Unknown]
  - Weight increased [Unknown]
  - Dyspnoea exertional [Unknown]
  - Exercise tolerance decreased [Not Recovered/Not Resolved]
  - Glycogen storage disease type II [Not Recovered/Not Resolved]
  - Disease progression [Not Recovered/Not Resolved]
